FAERS Safety Report 6556572-4 (Version None)
Quarter: 2010Q1

REPORT INFORMATION
  Report Type: 
  Country: None (occurrence: None)
  Receive Date: 20100128
  Receipt Date: 20100121
  Transmission Date: 20100710
  Serious: Yes (Hospitalization)
  Sender: FDA-Public Use
  Company Number: CA-SANOFI-AVENTIS-2010SA004440

PATIENT

DRUGS (2)
  1. LANTUS [Suspect]
     Route: 058
  2. APIDRA [Suspect]
     Route: 058

REACTIONS (3)
  - DIABETIC KETOACIDOSIS [None]
  - PRODUCT QUALITY ISSUE [None]
  - WRONG DRUG ADMINISTERED [None]
